FAERS Safety Report 9877511 (Version 2)
Quarter: 2014Q1

REPORT INFORMATION
  Report Type: Other
  Country: US (occurrence: US)
  Receive Date: 20140206
  Receipt Date: 20140206
  Transmission Date: 20141002
  Serious: No
  Sender: FDA-Public Use
  Company Number: US-ACORDA-ACO_38303_2013

PATIENT
  Sex: Male

DRUGS (2)
  1. AMPYRA [Suspect]
     Indication: GAIT DISTURBANCE
     Dosage: 20 MG, UNK
     Route: 048
     Dates: start: 201309, end: 201309
  2. AMPYRA [Suspect]
     Dosage: UNK
     Dates: start: 20130903

REACTIONS (1)
  - Expired drug administered [Unknown]
